FAERS Safety Report 14213654 (Version 2)
Quarter: 2017Q4

REPORT INFORMATION
  Report Type: Spontaneous
  Country: US (occurrence: US)
  Receive Date: 20171122
  Receipt Date: 20171226
  Transmission Date: 20180321
  Serious: No
  Sender: FDA-Public Use
  Company Number: PHEH2017US037394

PATIENT

DRUGS (1)
  1. OLOPATADINE. [Suspect]
     Active Substance: OLOPATADINE
     Indication: EYE IRRITATION
     Route: 047

REACTIONS (3)
  - Drug prescribing error [Unknown]
  - Product dropper issue [Unknown]
  - Accidental exposure to product [Unknown]
